FAERS Safety Report 5168309-4 (Version None)
Quarter: 2006Q4

REPORT INFORMATION
  Report Type: 
  Country: None (occurrence: None)
  Receive Date: 20061208
  Receipt Date: 20060308
  Transmission Date: 20070319
  Serious: Yes (Other)
  Sender: FDA-Public Use
  Company Number: BR-ROCHE-439599

PATIENT
  Sex: Female
  Weight: 1.2 kg

DRUGS (4)
  1. RIVOTRIL [Suspect]
     Indication: PANIC DISORDER
     Dates: start: 20000615, end: 20060315
  2. RIVOTRIL [Suspect]
     Dates: start: 20060515
  3. DAFORIN [Concomitant]
     Indication: ANXIETY
     Dates: start: 20060315, end: 20060515
  4. TOFRANIL [Concomitant]

REACTIONS (6)
  - CAESAREAN SECTION [None]
  - CYANOSIS NEONATAL [None]
  - DRUG EXPOSURE DURING PREGNANCY [None]
  - OMPHALORRHEXIS [None]
  - PREGNANCY [None]
  - PREMATURE LABOUR [None]
